FAERS Safety Report 14632721 (Version 2)
Quarter: 2018Q2

REPORT INFORMATION
  Report Type: Spontaneous
  Country: US (occurrence: US)
  Receive Date: 20180313
  Receipt Date: 20180508
  Transmission Date: 20180711
  Serious: No
  Sender: FDA-Public Use
  Company Number: US-CELLTRION INC.-2017US013857

PATIENT

DRUGS (4)
  1. INFLECTRA [Suspect]
     Active Substance: INFLIXIMAB-DYYB
     Dosage: 3 VIALS EVERY 6 WEEKS
     Route: 065
     Dates: start: 20170815, end: 20170815
  2. INFLECTRA [Suspect]
     Active Substance: INFLIXIMAB-DYYB
     Indication: RHEUMATOID ARTHRITIS
     Dosage: 3 VIALS, EVERY 6 WEEKS
     Route: 065
  3. INFLECTRA [Suspect]
     Active Substance: INFLIXIMAB-DYYB
     Dosage: 3 VIALS EVERY 6 WEEKS
     Route: 065
     Dates: start: 20180130, end: 20180130
  4. INFLECTRA [Suspect]
     Active Substance: INFLIXIMAB-DYYB
     Dosage: 3 VIALS EVERY 6 WEEKS
     Route: 065
     Dates: start: 20171031, end: 20171031

REACTIONS (1)
  - Inappropriate schedule of drug administration [Unknown]
